FAERS Safety Report 13840665 (Version 1)
Quarter: 2017Q3

REPORT INFORMATION
  Report Type: Spontaneous
  Country: DE (occurrence: DE)
  Receive Date: 20170807
  Receipt Date: 20170807
  Transmission Date: 20171127
  Serious: Yes (Other)
  Sender: FDA-Public Use
  Company Number: DE-JNJFOC-20170801395

PATIENT
  Sex: Male

DRUGS (1)
  1. XEPLION [Suspect]
     Active Substance: PALIPERIDONE PALMITATE
     Indication: PRODUCT USED FOR UNKNOWN INDICATION
     Route: 030

REACTIONS (12)
  - Mental impairment [Unknown]
  - Memory impairment [Unknown]
  - Breast pain [Unknown]
  - Overweight [Unknown]
  - Dizziness [Unknown]
  - Balance disorder [Unknown]
  - Nasopharyngitis [Unknown]
  - Muscle spasms [Unknown]
  - Pruritus generalised [Unknown]
  - Erythema [Unknown]
  - Oedema peripheral [Unknown]
  - Sleep disorder [Unknown]
